FAERS Safety Report 7673341-2 (Version None)
Quarter: 2011Q3

REPORT INFORMATION
  Report Type: 
  Country: None (occurrence: None)
  Receive Date: 20110810
  Receipt Date: 20110728
  Transmission Date: 20111222
  Serious: Yes (Other)
  Sender: FDA-Public Use
  Company Number: CA-JNJFOC-20110802443

PATIENT
  Age: 52 Year
  Sex: Male

DRUGS (12)
  1. DARUNAVIR [Suspect]
     Indication: HIV INFECTION
     Route: 048
     Dates: start: 20070118, end: 20070222
  2. DARUNAVIR [Suspect]
     Route: 048
     Dates: start: 20060531, end: 20070117
  3. RALTEGRAVIR [Suspect]
     Indication: HIV INFECTION
     Route: 048
     Dates: start: 20060531, end: 20070117
  4. RALTEGRAVIR [Suspect]
     Route: 048
     Dates: start: 20070118, end: 20070222
  5. ZIAGEN [Suspect]
     Indication: HIV INFECTION
     Dates: start: 20060531
  6. ASPIRIN [Concomitant]
     Dates: start: 20020501
  7. SEPTRA [Concomitant]
     Dates: start: 20060327
  8. RITONAVIR [Suspect]
     Indication: HIV INFECTION
     Dates: start: 20060531
  9. TYLENOL-500 [Concomitant]
     Dates: start: 19800101
  10. IMODIUM [Concomitant]
     Dates: start: 20060627
  11. RALTEGRAVIR [Suspect]
     Route: 048
     Dates: start: 20070223
  12. FUZEON [Suspect]
     Indication: HIV INFECTION
     Dates: start: 20060531

REACTIONS (2)
  - UNDERDOSE [None]
  - ACCIDENTAL OVERDOSE [None]
